FAERS Safety Report 8489681-3 (Version None)
Quarter: 2012Q3

REPORT INFORMATION
  Report Type: 
  Country: None (occurrence: None)
  Receive Date: 20120705
  Receipt Date: 20120627
  Transmission Date: 20120928
  Serious: Yes (Death, Hospitalization)
  Sender: FDA-Public Use
  Company Number: US-GLAXOSMITHKLINE-A0970223A

PATIENT
  Age: 65 Year
  Sex: Female
  Weight: 61 kg

DRUGS (7)
  1. LASIX [Concomitant]
  2. PLAVIX [Concomitant]
  3. DIGOXIN [Concomitant]
  4. ASPIRIN [Concomitant]
  5. FLOLAN [Suspect]
     Indication: PULMONARY ARTERIAL HYPERTENSION
     Dosage: 28.7NGKM SEE DOSAGE TEXT
     Route: 042
     Dates: start: 20101025
  6. COUMADIN [Concomitant]
  7. OXYGEN [Concomitant]

REACTIONS (6)
  - FLUID OVERLOAD [None]
  - PULMONARY ARTERIAL HYPERTENSION [None]
  - FALL [None]
  - DEATH [None]
  - BLISTER [None]
  - HEAD INJURY [None]
